FAERS Safety Report 19419604 (Version 2)
Quarter: 2021Q4

REPORT INFORMATION
  Report Type: Spontaneous
  Country: JP (occurrence: JP)
  Receive Date: 20210615
  Receipt Date: 20211223
  Transmission Date: 20220303
  Serious: Yes (Death, Other)
  Sender: FDA-Public Use
  Company Number: JP-BRISTOL-MYERS SQUIBB COMPANY-BMS-2021-048323

PATIENT
  Age: 75 Year
  Sex: Male

DRUGS (4)
  1. YERVOY [Suspect]
     Active Substance: IPILIMUMAB
     Indication: Non-small cell lung cancer recurrent
     Dosage: 1 MILLIGRAM/KILOGRAM
     Route: 041
     Dates: start: 20210430, end: 20210430
  2. OPDIVO [Suspect]
     Active Substance: NIVOLUMAB
     Indication: Non-small cell lung cancer recurrent
     Dosage: 360 MILLIGRAM
     Route: 041
     Dates: start: 20210430, end: 20210430
  3. PARAPLATIN [Suspect]
     Active Substance: CARBOPLATIN
     Indication: Non-small cell lung cancer
     Dosage: UNK
     Route: 065
     Dates: start: 20210430, end: 20210430
  4. PEMETREXED [Suspect]
     Active Substance: PEMETREXED
     Indication: Non-small cell lung cancer
     Dosage: UNK
     Route: 065
     Dates: start: 20210430, end: 20210430

REACTIONS (1)
  - Sepsis [Fatal]

NARRATIVE: CASE EVENT DATE: 20210503
